FAERS Safety Report 4935939-1 (Version None)
Quarter: 2006Q1

REPORT INFORMATION
  Report Type: 
  Country: None (occurrence: None)
  Receive Date: 20060307
  Receipt Date: 20050725
  Transmission Date: 20060701
  Serious: No
  Sender: FDA-Public Use
  Company Number: US-GLAXOSMITHKLINE-A0567524A

PATIENT
  Age: 56 Year
  Sex: Female

DRUGS (12)
  1. REQUIP [Suspect]
     Indication: RESTLESS LEGS SYNDROME
     Dosage: 1MG PER DAY
     Route: 048
     Dates: start: 20050716
  2. CLONAZEPAM [Concomitant]
  3. ACIPHEX [Concomitant]
  4. IRON [Concomitant]
  5. NASONEX [Concomitant]
  6. CLARITIN-D [Concomitant]
  7. MULTI-VITAMIN [Concomitant]
  8. ASCORBIC ACID [Concomitant]
  9. VITAMIN E [Concomitant]
  10. FIBERCON [Concomitant]
  11. TYLENOL (CAPLET) [Concomitant]
  12. ADVIL [Concomitant]

REACTIONS (3)
  - BACK PAIN [None]
  - NECK PAIN [None]
  - SOMNOLENCE [None]
